FAERS Safety Report 5106714-2 (Version None)
Quarter: 2006Q3

REPORT INFORMATION
  Report Type: 
  Country: None (occurrence: None)
  Receive Date: 20060913
  Receipt Date: 20060825
  Transmission Date: 20061208
  Serious: Yes (Hospitalization)
  Sender: FDA-Public Use
  Company Number: FR200607002072

PATIENT
  Age: 69 Year
  Sex: Female

DRUGS (6)
  1. FORTEO [Suspect]
     Indication: OSTEOPOROSIS
     Dosage: 20 UG, DAILY (1/D), SUBCUTANEOUS
     Route: 058
     Dates: start: 20051110
  2. FORTEO [Concomitant]
  3. LODOZ (BISOPROLOL FUMARATE, HYDROCHLOROTHIAZIDE) [Concomitant]
  4. KENZEN (CANDESARTAN CILEXETIL) TABLET [Concomitant]
  5. OMEPRAZOLE (OMEPRAZOLE) TABLET [Concomitant]
  6. DOLIPRANE (PARACETAMOL) TABLET [Concomitant]

REACTIONS (3)
  - BURSITIS INFECTIVE [None]
  - CYSTIC LYMPHANGIOMA [None]
  - DEVICE RELATED INFECTION [None]
